FAERS Safety Report 8433092-3 (Version None)
Quarter: 2012Q2

REPORT INFORMATION
  Report Type: 
  Country: None (occurrence: None)
  Receive Date: 20120613
  Receipt Date: 20120608
  Transmission Date: 20120825
  Serious: Yes (Other)
  Sender: FDA-Public Use
  Company Number: PHHY2012CA035419

PATIENT
  Sex: Female

DRUGS (2)
  1. SANDOSTATIN [Suspect]
     Indication: ACROMEGALY
     Dosage: UNK UKN, ONCE/SINGLE
     Route: 058
     Dates: start: 20120419, end: 20120419
  2. SANDOSTATIN LAR [Suspect]
     Indication: ACROMEGALY
     Dosage: 20 MG, EVERY 4 WEEKS
     Route: 030
     Dates: start: 20120420

REACTIONS (3)
  - COAGULOPATHY [None]
  - VISUAL IMPAIRMENT [None]
  - BLOOD PRESSURE INCREASED [None]
